FAERS Safety Report 8334435-1 (Version None)
Quarter: 2012Q2

REPORT INFORMATION
  Report Type: 
  Country: None (occurrence: None)
  Receive Date: 20120503
  Receipt Date: 20111122
  Transmission Date: 20120825
  Serious: No
  Sender: FDA-Public Use
  Company Number: US-BAUSCH-2011BL008257

PATIENT
  Age: 62 Year
  Sex: Female

DRUGS (3)
  1. LOTEMAX [Suspect]
     Indication: CORNEAL GRAFT REJECTION
     Route: 047
     Dates: start: 20060101
  2. LOTEMAX [Suspect]
     Indication: OFF LABEL USE
     Route: 047
     Dates: start: 20060101
  3. RESTASIS [Concomitant]
     Indication: DRY EYE

REACTIONS (1)
  - ALOPECIA [None]
